FAERS Safety Report 25801804 (Version 2)
Quarter: 2025Q4

REPORT INFORMATION
  Report Type: Spontaneous
  Country: US (occurrence: US)
  Receive Date: 20250915
  Receipt Date: 20251210
  Transmission Date: 20260118
  Serious: Yes (Other)
  Sender: TAIHO ONCOLOGY INC
  Company Number: US-TAIHOP-2025-009765

PATIENT
  Sex: Female

DRUGS (1)
  1. INQOVI [Suspect]
     Active Substance: CEDAZURIDINE\DECITABINE
     Indication: Product used for unknown indication
     Dosage: 135 MG (DECITABINE 35MG AND CEDAZURIDINE 100 MG) ON DAY 1 THROUGH 5?CYCLE UNKNOWN
     Route: 048

REACTIONS (2)
  - Thrombocytopenia [Unknown]
  - Autoimmune haemolytic anaemia [Unknown]
